FAERS Safety Report 6644630-5 (Version None)
Quarter: 2010Q1

REPORT INFORMATION
  Report Type: 
  Country: None (occurrence: None)
  Receive Date: 20100318
  Receipt Date: 20100318
  Transmission Date: 20100710
  Serious: Yes (Hospitalization)
  Sender: FDA-Public Use
  Company Number: None

PATIENT
  Age: 66 Year
  Sex: Male
  Weight: 87 kg

DRUGS (2)
  1. POLYMYCIN B SULFATE [Suspect]
     Indication: OSTEOMYELITIS
     Dosage: 450-900K UNITS BID IV
     Route: 042
     Dates: start: 20090513, end: 20090602
  2. COLISTIMETHATE SODIUM [Suspect]
     Indication: OSTEOMYELITIS
     Dosage: 75-150 MG BID IV
     Route: 042
     Dates: start: 20090602, end: 20090624

REACTIONS (4)
  - CARDIAC FAILURE [None]
  - CONDITION AGGRAVATED [None]
  - FLUID OVERLOAD [None]
  - RENAL FAILURE ACUTE [None]
